FAERS Safety Report 12257018 (Version 2)
Quarter: 2016Q2

REPORT INFORMATION
  Report Type: Spontaneous
  Country: US (occurrence: US)
  Receive Date: 20160412
  Receipt Date: 20160627
  Transmission Date: 20160815
  Serious: Yes (Hospitalization, Other)
  Sender: FDA-Public Use
  Company Number: US-PFIZER INC-2016199018

PATIENT
  Age: 74 Year
  Sex: Female
  Weight: 73 kg

DRUGS (9)
  1. EDARBI [Concomitant]
     Active Substance: AZILSARTAN KAMEDOXOMIL
     Indication: HYPERTENSION
     Dosage: 40 MG, 1X/DAY IN THE MORNING
  2. AROMASIN [Suspect]
     Active Substance: EXEMESTANE
     Dosage: UNK
  3. LETROZOLE. [Suspect]
     Active Substance: LETROZOLE
     Dosage: 2.5 MG, UNK
  4. AMLODIPINE [Concomitant]
     Active Substance: AMLODIPINE BESYLATE
     Indication: HYPERTENSION
     Dosage: 10 MG, 1X/DAY
  5. AROMASIN [Suspect]
     Active Substance: EXEMESTANE
     Dosage: 45 MG, 1X/DAY AT NIGHT
     Dates: start: 20160301, end: 201603
  6. ANASTROZOLE. [Suspect]
     Active Substance: ANASTROZOLE
     Dosage: 1 MG, UNK
  7. AMLODIPINE [Concomitant]
     Active Substance: AMLODIPINE BESYLATE
     Dosage: 10 MG, UNK
  8. HCTZ [Concomitant]
     Active Substance: HYDROCHLOROTHIAZIDE
     Dosage: 12.5 MG, DAILY (25 MG 1/2 DAILY)
  9. AMLODIPINE [Concomitant]
     Active Substance: AMLODIPINE BESYLATE
     Dosage: UNK (1/2 5 MG)

REACTIONS (17)
  - Mental impairment [Unknown]
  - Joint swelling [Recovered/Resolved]
  - Gait disturbance [Recovered/Resolved]
  - Amnesia [Not Recovered/Not Resolved]
  - Discomfort [Unknown]
  - Depressed mood [Recovered/Resolved]
  - Weight increased [Recovered/Resolved]
  - Product use issue [Recovered/Resolved]
  - Alopecia [Recovered/Resolved]
  - Condition aggravated [Recovered/Resolved]
  - Confusional state [Not Recovered/Not Resolved]
  - Memory impairment [Not Recovered/Not Resolved]
  - Visual impairment [Not Recovered/Not Resolved]
  - Back disorder [Recovered/Resolved]
  - Arthritis [Recovered/Resolved]
  - Peripheral swelling [Recovered/Resolved]
  - Thinking abnormal [Recovered/Resolved]

NARRATIVE: CASE EVENT DATE: 201603
